FAERS Safety Report 17960657 (Version 3)
Quarter: 2020Q3

REPORT INFORMATION
  Report Type: Report from Study
  Country: US (occurrence: US)
  Receive Date: 20200630
  Receipt Date: 20200914
  Transmission Date: 20201103
  Serious: Yes (Hospitalization)
  Sender: FDA-Public Use
  Company Number: US-ROCHE-2626770

PATIENT
  Age: 53 Year
  Sex: Female
  Weight: 62 kg

DRUGS (9)
  1. OBINUTUZUMAB. [Suspect]
     Active Substance: OBINUTUZUMAB
     Indication: CHRONIC LYMPHOCYTIC LEUKAEMIA
     Dosage: DAY 1, CYCLE 1
     Route: 042
     Dates: start: 20191212
  2. VENETOCLAX. [Suspect]
     Active Substance: VENETOCLAX
     Dosage: DAYS 15 TO 21, CYCLE 3
     Route: 048
  3. VENETOCLAX. [Suspect]
     Active Substance: VENETOCLAX
     Indication: CHRONIC LYMPHOCYTIC LEUKAEMIA
     Dosage: DAYS 1 TO 7 CYCLE 3
     Route: 048
     Dates: start: 20191212
  4. VENETOCLAX. [Suspect]
     Active Substance: VENETOCLAX
     Dosage: DAYS 1 TO 28, CYCLES 4?14: LAST ADMINISTERED DATE: 27/MAY/2020
     Route: 048
  5. OBINUTUZUMAB. [Suspect]
     Active Substance: OBINUTUZUMAB
     Dosage: DAY 2, CYCLE 1
     Route: 042
  6. OBINUTUZUMAB. [Suspect]
     Active Substance: OBINUTUZUMAB
     Dosage: 1000 MG IV ON DAY 8, CYCLE 1 1000 MG IV ON DAY 15, CYCLE 1 1000 MG IV ON DAY 1, CYCLE 2?6: LAST ADMI
     Route: 042
  7. VENETOCLAX. [Suspect]
     Active Substance: VENETOCLAX
     Dosage: DAYS 8 TO 14, CYCLE 3
     Route: 048
  8. VENETOCLAX. [Suspect]
     Active Substance: VENETOCLAX
     Dosage: DAYS 22 TO 28, CYCLE 3
     Route: 048
  9. IBRUTINIB [Suspect]
     Active Substance: IBRUTINIB
     Indication: CHRONIC LYMPHOCYTIC LEUKAEMIA
     Dosage: DAYS 1?28, CYCLES 1?19: TOTAL DOSE ADMINISTERED THIS COURSE: 6 MG LAST ADMINISTERED DATE: 02/JUN/202
     Route: 048
     Dates: start: 20191212

REACTIONS (1)
  - Pancreatitis [Recovered/Resolved]

NARRATIVE: CASE EVENT DATE: 20200603
